FAERS Safety Report 4831657-9 (Version None)
Quarter: 2005Q4

REPORT INFORMATION
  Report Type: 
  Country: None (occurrence: None)
  Receive Date: 20051116
  Receipt Date: 20051101
  Transmission Date: 20060501
  Serious: Yes (Hospitalization)
  Sender: FDA-Public Use
  Company Number: 2005-US-00098

PATIENT
  Age: 44 Year
  Sex: Male
  Weight: 114.76 kg

DRUGS (7)
  1. CLOZAPINE [Suspect]
     Indication: BIPOLAR DISORDER
     Dosage: 300 MG, QD, ORAL
     Route: 048
     Dates: start: 20010401, end: 20050901
  2. CLOZAPINE [Suspect]
     Indication: SCHIZOAFFECTIVE DISORDER
     Dosage: 300 MG, QD, ORAL
     Route: 048
     Dates: start: 20010401, end: 20050901
  3. BUPROPION HCL [Suspect]
     Indication: DEPRESSION
     Dosage: XL 450 MG BID, ORAL
     Route: 048
  4. LITHIUM CARBONATE [Concomitant]
  5. IPRATROPIUM BROMIDE [Concomitant]
  6. SALBUTAMOL [Concomitant]
  7. BENZTROPEINE [Concomitant]

REACTIONS (5)
  - APNOEA [None]
  - CARDIAC ARREST [None]
  - CHRONIC OBSTRUCTIVE PULMONARY DISEASE [None]
  - PNEUMONIA [None]
  - RESPIRATORY ARREST [None]
